FAERS Safety Report 23906909 (Version 1)
Quarter: 2024Q2

REPORT INFORMATION
  Report Type: Spontaneous
  Country: DE (occurrence: DE)
  Receive Date: 20240528
  Receipt Date: 20240528
  Transmission Date: 20240715
  Serious: Yes (Hospitalization, Other)
  Sender: FDA-Public Use
  Company Number: DE-ABBVIE-5772948

PATIENT
  Age: 31 Year
  Sex: Female

DRUGS (12)
  1. BOTOX [Suspect]
     Active Substance: ONABOTULINUMTOXINA
     Indication: Pronator teres syndrome
     Dosage: TIME INTERVAL: AS NECESSARY: (40 MU), EACH MM, TOTAL DOSE OF 160 MU
     Route: 065
     Dates: start: 201111, end: 201111
  2. BOTOX [Suspect]
     Active Substance: ONABOTULINUMTOXINA
     Indication: Pronator teres syndrome
     Dosage: TIME INTERVAL: AS NECESSARY: 10 MU  EACH MM
     Route: 065
     Dates: start: 20240220, end: 20240220
  3. BOTOX [Suspect]
     Active Substance: ONABOTULINUMTOXINA
     Indication: Pronator teres syndrome
     Dosage: TIME INTERVAL: AS NECESSARY: TOTAL DOSE OF 160 MU, (20 MU),  EACH MM
     Route: 065
     Dates: start: 201111, end: 201111
  4. BOTOX [Suspect]
     Active Substance: ONABOTULINUMTOXINA
     Indication: Pronator teres syndrome
     Dosage: TIME INTERVAL: AS NECESSARY: (20 MU),  EACH MM, TOTAL DOSE OF 160 MU
     Route: 065
     Dates: start: 201111, end: 201111
  5. BOTOX [Suspect]
     Active Substance: ONABOTULINUMTOXINA
     Indication: Pronator teres syndrome
     Dosage: TIME INTERVAL: AS NECESSARY: (20 MU),  EACH MM, TOTAL DOSE OF 160 MU
     Route: 065
     Dates: start: 201111, end: 201111
  6. BOTOX [Suspect]
     Active Substance: ONABOTULINUMTOXINA
     Indication: Pronator teres syndrome
     Dosage: TIME INTERVAL: AS NECESSARY: (40 MU),  EACH MM, TOTAL DOSE OF 160 MU
     Route: 065
     Dates: start: 201111, end: 201111
  7. BOTOX [Suspect]
     Active Substance: ONABOTULINUMTOXINA
     Indication: Pronator teres syndrome
     Dosage: TIME INTERVAL: AS NECESSARY: 30 MU  EACH MM
     Route: 065
     Dates: start: 20240220, end: 20240220
  8. BOTOX [Suspect]
     Active Substance: ONABOTULINUMTOXINA
     Indication: Pronator teres syndrome
     Dosage: TIME INTERVAL: AS NECESSARY: 10 MU  EACH MM
     Route: 065
     Dates: start: 20240220, end: 20240220
  9. BOTOX [Suspect]
     Active Substance: ONABOTULINUMTOXINA
     Indication: Pronator teres syndrome
     Dosage: TIME INTERVAL: AS NECESSARY: 10 MU  EACH MM
     Route: 065
     Dates: start: 20240220, end: 20240220
  10. BOTOX [Suspect]
     Active Substance: ONABOTULINUMTOXINA
     Indication: Pronator teres syndrome
     Dosage: TIME INTERVAL: AS NECESSARY: 15 MU  EACH MM
     Route: 065
     Dates: start: 20240220, end: 20240220
  11. BOTOX [Suspect]
     Active Substance: ONABOTULINUMTOXINA
     Indication: Pronator teres syndrome
     Dosage: TIME INTERVAL: AS NECESSARY: 15 MU EACH MM
     Route: 065
     Dates: start: 20240220, end: 20240220
  12. BOTOX [Suspect]
     Active Substance: ONABOTULINUMTOXINA
     Indication: Pronator teres syndrome
     Dosage: TIME INTERVAL: AS NECESSARY: 40 MU EACH MM
     Route: 065
     Dates: start: 20240220, end: 20240220

REACTIONS (6)
  - Hemiparesis [Unknown]
  - Muscle spasticity [Unknown]
  - Dysarthria [Unknown]
  - Depression [Unknown]
  - Hemiplegia [Unknown]
  - Dystonia [Unknown]
